FAERS Safety Report 7229077-5 (Version None)
Quarter: 2011Q1

REPORT INFORMATION
  Report Type: 
  Country: None (occurrence: None)
  Receive Date: 20110117
  Receipt Date: 20101228
  Transmission Date: 20110831
  Serious: No
  Sender: FDA-Public Use
  Company Number: PR-JNJFOC-20101208804

PATIENT
  Sex: Male
  Weight: 90.72 kg

DRUGS (3)
  1. CLONOPIN [Concomitant]
     Indication: DEPRESSION
     Route: 048
  2. INVEGA SUSTENNA [Suspect]
     Indication: SCHIZOPHRENIA
  3. INVEGA [Suspect]
     Indication: SCHIZOPHRENIA
     Route: 048

REACTIONS (4)
  - FEELING HOT [None]
  - ABNORMAL BEHAVIOUR [None]
  - NAUSEA [None]
  - DYSGEUSIA [None]
